FAERS Safety Report 10058590 (Version 2)
Quarter: 2014Q2

REPORT INFORMATION
  Report Type: Spontaneous
  Country: US (occurrence: US)
  Receive Date: 20140404
  Receipt Date: 20140404
  Transmission Date: 20141212
  Serious: No
  Sender: FDA-Public Use
  Company Number: US-MALLINCKRODT-T201304903

PATIENT
  Age: 83 Year
  Sex: Female
  Weight: 68.27 kg

DRUGS (8)
  1. TEMAZEPAM [Suspect]
     Indication: INSOMNIA
     Dosage: 7.5 MG; 2 CAPSULES HS
     Route: 048
     Dates: start: 201310
  2. METOPROLOL [Concomitant]
     Dosage: UNK
  3. EVISTA [Concomitant]
     Dosage: UNK
  4. SYNTHROID [Concomitant]
     Dosage: UNK
  5. BALSALAZIDE DISODIUM [Concomitant]
     Dosage: UNK
  6. CENTRUM SILVER                     /02363801/ [Concomitant]
     Dosage: UNK
  7. CALCIUM [Concomitant]
     Dosage: UNK
  8. VITAMIN D                          /00107901/ [Concomitant]
     Dosage: UNK

REACTIONS (1)
  - Dry eye [Not Recovered/Not Resolved]
